FAERS Safety Report 18353566 (Version 3)
Quarter: 2021Q2

REPORT INFORMATION
  Report Type: Spontaneous
  Country: ZA (occurrence: ZA)
  Receive Date: 20201007
  Receipt Date: 20210517
  Transmission Date: 20210717
  Serious: Yes (Other)
  Sender: FDA-Public Use
  Company Number: ZA-ROCHE-2687398

PATIENT
  Sex: Male
  Weight: 77.5 kg

DRUGS (4)
  1. ALLOPURINOL. [Concomitant]
     Active Substance: ALLOPURINOL
     Indication: BLOOD URIC ACID
     Route: 048
     Dates: start: 20200603
  2. ENTRECTINIB [Suspect]
     Active Substance: ENTRECTINIB
     Route: 048
  3. DORMONOCT [Concomitant]
     Active Substance: LOPRAZOLAM
     Indication: INSOMNIA
     Route: 048
     Dates: start: 20191219
  4. ENTRECTINIB [Suspect]
     Active Substance: ENTRECTINIB
     Indication: GASTROINTESTINAL STROMAL TUMOUR
     Route: 048
     Dates: start: 20191128

REACTIONS (4)
  - Interstitial lung disease [Recovered/Resolved]
  - Off label use [Unknown]
  - Pneumonitis [Not Recovered/Not Resolved]
  - Dyspnoea [Unknown]

NARRATIVE: CASE EVENT DATE: 20200915
